FAERS Safety Report 20740544 (Version 2)
Quarter: 2022Q4

REPORT INFORMATION
  Report Type: Report from Study
  Country: TW (occurrence: TW)
  Receive Date: 20220422
  Receipt Date: 20221019
  Transmission Date: 20230113
  Serious: Yes (Hospitalization, Other)
  Sender: FDA-Public Use
  Company Number: TW-TAKEDA-TW201920158

PATIENT
  Age: 30 Year
  Sex: Male

DRUGS (166)
  1. IDURSULFASE [Suspect]
     Active Substance: IDURSULFASE
     Indication: Mucopolysaccharidosis II
     Dosage: UNK UNK, 1/WEEK
     Route: 042
     Dates: start: 20101020
  2. IDURSULFASE [Suspect]
     Active Substance: IDURSULFASE
     Dosage: 0.5 MILLIGRAM/KILOGRAM, 1/WEEK
     Route: 042
     Dates: start: 20190509
  3. IDURSULFASE [Suspect]
     Active Substance: IDURSULFASE
     Dosage: UNK
     Route: 042
     Dates: start: 20190613
  4. IDURSULFASE [Suspect]
     Active Substance: IDURSULFASE
     Dosage: 0.5 MILLIGRAM/KILOGRAM, 1/WEEK
     Route: 042
  5. IDURSULFASE [Suspect]
     Active Substance: IDURSULFASE
     Dosage: 0.48 MILLIGRAM/KILOGRAM, 1/WEEK
     Route: 042
     Dates: start: 20211125
  6. IDURSULFASE [Suspect]
     Active Substance: IDURSULFASE
     Dosage: 4 DOSAGE FORM, 1/WEEK
     Route: 042
     Dates: start: 20220331, end: 20220331
  7. IDURSULFASE [Suspect]
     Active Substance: IDURSULFASE
     Dosage: 0.49 MILLIGRAM/KILOGRAM, 1/WEEK
     Route: 042
     Dates: start: 20220616
  8. DIGOXIN [Concomitant]
     Active Substance: DIGOXIN
     Indication: Cardiovascular disorder
     Dosage: UNK
     Route: 048
     Dates: start: 20060928
  9. ACETAMINOPHEN [Concomitant]
     Active Substance: ACETAMINOPHEN
     Indication: Antiinflammatory therapy
     Dosage: UNK
     Route: 048
     Dates: start: 20080616
  10. ACETAMINOPHEN [Concomitant]
     Active Substance: ACETAMINOPHEN
     Indication: Pain
     Dosage: UNK
     Route: 048
     Dates: start: 20100521
  11. ACETAMINOPHEN [Concomitant]
     Active Substance: ACETAMINOPHEN
     Indication: Analgesic therapy
     Dosage: UNK
     Route: 048
     Dates: start: 20140723, end: 20140726
  12. ACETAMINOPHEN [Concomitant]
     Active Substance: ACETAMINOPHEN
     Indication: Pyrexia
     Dosage: UNK
     Route: 048
     Dates: start: 20140730, end: 20140801
  13. ACETAMINOPHEN [Concomitant]
     Active Substance: ACETAMINOPHEN
     Dosage: UNK
     Route: 048
     Dates: start: 20180222, end: 20180225
  14. ACETAMINOPHEN [Concomitant]
     Active Substance: ACETAMINOPHEN
     Dosage: UNK
     Route: 048
     Dates: start: 20190619, end: 20190624
  15. ACETAMINOPHEN [Concomitant]
     Active Substance: ACETAMINOPHEN
     Dosage: UNK
     Route: 048
     Dates: start: 20200127, end: 20200130
  16. ACETAMINOPHEN [Concomitant]
     Active Substance: ACETAMINOPHEN
     Dosage: UNK
     Route: 048
     Dates: start: 20201112, end: 20201115
  17. ACETAMINOPHEN [Concomitant]
     Active Substance: ACETAMINOPHEN
     Dosage: UNK
     Route: 048
     Dates: start: 20201228, end: 20201231
  18. ACETAMINOPHEN [Concomitant]
     Active Substance: ACETAMINOPHEN
     Dosage: UNK
     Route: 048
     Dates: start: 20210107, end: 20210110
  19. ACETAMINOPHEN [Concomitant]
     Active Substance: ACETAMINOPHEN
     Dosage: UNK
     Route: 048
     Dates: start: 20211223, end: 20211228
  20. GUAIFENESIN [Concomitant]
     Active Substance: GUAIFENESIN
     Indication: Bronchial hyperreactivity
     Dosage: UNK
     Route: 048
     Dates: start: 20080616, end: 20080616
  21. GUAIFENESIN [Concomitant]
     Active Substance: GUAIFENESIN
     Indication: Mucosal disorder
     Dosage: UNK
     Route: 048
     Dates: start: 20090720
  22. GUAIFENESIN [Concomitant]
     Active Substance: GUAIFENESIN
     Indication: Bronchitis
     Dosage: UNK
     Route: 048
     Dates: start: 20200528, end: 20200603
  23. GUAIFENESIN [Concomitant]
     Active Substance: GUAIFENESIN
     Dosage: UNK
     Route: 048
     Dates: start: 20220127, end: 20220201
  24. ACETYLCYSTEINE [Concomitant]
     Active Substance: ACETYLCYSTEINE
     Indication: Respiratory disorder
     Dosage: UNK
     Route: 048
     Dates: start: 20080624, end: 20080701
  25. ACETYLCYSTEINE [Concomitant]
     Active Substance: ACETYLCYSTEINE
     Indication: Productive cough
     Dosage: UNK
     Route: 048
     Dates: start: 20080717, end: 20080723
  26. ACETYLCYSTEINE [Concomitant]
     Active Substance: ACETYLCYSTEINE
     Indication: Mucosal disorder
     Dosage: UNK
     Route: 048
     Dates: start: 20090720
  27. ACETYLCYSTEINE [Concomitant]
     Active Substance: ACETYLCYSTEINE
     Dosage: UNK
     Route: 048
     Dates: start: 20140903, end: 20140920
  28. ACETYLCYSTEINE [Concomitant]
     Active Substance: ACETYLCYSTEINE
     Dosage: UNK
     Route: 048
     Dates: start: 20140915, end: 20140918
  29. ACETYLCYSTEINE [Concomitant]
     Active Substance: ACETYLCYSTEINE
     Dosage: UNK
     Route: 048
     Dates: start: 20190618, end: 20190626
  30. ACETYLCYSTEINE [Concomitant]
     Active Substance: ACETYLCYSTEINE
     Dosage: UNK
     Route: 048
     Dates: start: 20201013, end: 20201027
  31. CARBINOXAMINE MALEATE;PSEUDOEPHEDRINE HYDROCHLORIDE [Concomitant]
     Indication: Respiratory disorder
     Dosage: UNK
     Route: 048
     Dates: start: 20080717, end: 20080723
  32. CEPHALEXIN MONOHYDRATE [Concomitant]
     Active Substance: CEPHALEXIN MONOHYDRATE
     Indication: Bacterial infection
     Dosage: UNK
     Route: 048
     Dates: start: 20080717, end: 20080723
  33. DUASMA [Concomitant]
     Indication: Respiratory disorder
     Dosage: UNK
     Route: 048
     Dates: start: 20090306
  34. PLATYCODON GRANDIFLORUS WHOLE [Concomitant]
     Active Substance: PLATYCODON GRANDIFLORUS WHOLE
     Indication: Respiratory disorder
     Dosage: UNK
     Route: 048
     Dates: start: 20090306
  35. CAPTOPRIL [Concomitant]
     Active Substance: CAPTOPRIL
     Indication: Cardiovascular disorder
     Dosage: UNK
     Route: 048
     Dates: start: 20090312
  36. DILTIAZEM [Concomitant]
     Active Substance: DILTIAZEM
     Indication: Cardiovascular disorder
     Dosage: UNK
     Route: 048
     Dates: start: 20090312
  37. DILTIAZEM [Concomitant]
     Active Substance: DILTIAZEM
     Dosage: UNK
     Route: 048
     Dates: start: 20091207
  38. ALENDRONATE [Concomitant]
     Active Substance: ALENDRONATE SODIUM
     Indication: Osteoporosis
     Dosage: UNK
     Route: 048
     Dates: start: 20090720, end: 20090726
  39. ALENDRONATE [Concomitant]
     Active Substance: ALENDRONATE SODIUM
     Dosage: UNK
     Route: 048
     Dates: start: 20100521
  40. MEQUITAZINE [Concomitant]
     Active Substance: MEQUITAZINE
     Indication: Respiratory disorder
     Dosage: UNK
     Route: 048
     Dates: start: 20090720
  41. CAPTOLIN [Concomitant]
     Indication: Hypertension
     Dosage: UNK
     Route: 048
     Dates: start: 20091207
  42. BUDESONIDE [Concomitant]
     Active Substance: BUDESONIDE
     Indication: Respiratory disorder
     Dosage: UNK
     Route: 048
     Dates: start: 20100306
  43. BUDESONIDE [Concomitant]
     Active Substance: BUDESONIDE
     Indication: Asthma
     Dosage: UNK
     Route: 055
     Dates: start: 20111014
  44. BUDESONIDE [Concomitant]
     Active Substance: BUDESONIDE
     Indication: Bronchitis
     Dosage: UNK
     Route: 048
     Dates: start: 20170615, end: 20170615
  45. BUDESONIDE [Concomitant]
     Active Substance: BUDESONIDE
     Dosage: UNK
     Route: 055
     Dates: start: 20170622, end: 20170622
  46. BUDESONIDE [Concomitant]
     Active Substance: BUDESONIDE
     Dosage: UNK
     Route: 055
     Dates: start: 20190103, end: 20190110
  47. BUDESONIDE [Concomitant]
     Active Substance: BUDESONIDE
     Dosage: UNK
     Route: 055
     Dates: start: 20200528, end: 20200528
  48. BUDESONIDE [Concomitant]
     Active Substance: BUDESONIDE
     Dosage: UNK
     Route: 055
     Dates: start: 20201217, end: 20201227
  49. BUDESONIDE [Concomitant]
     Active Substance: BUDESONIDE
     Dosage: UNK
     Route: 055
     Dates: start: 20210531, end: 20210628
  50. BUDESONIDE [Concomitant]
     Active Substance: BUDESONIDE
     Dosage: UNK
     Route: 055
     Dates: start: 20210701, end: 20210729
  51. DEXTROMETHORPHAN [Concomitant]
     Active Substance: DEXTROMETHORPHAN
     Indication: Respiratory disorder
     Dosage: UNK
     Route: 048
     Dates: start: 20100519
  52. DEXTROMETHORPHAN [Concomitant]
     Active Substance: DEXTROMETHORPHAN
     Indication: Antitussive therapy
     Dosage: UNK
     Route: 048
     Dates: start: 20140723, end: 20140726
  53. DEXTROMETHORPHAN [Concomitant]
     Active Substance: DEXTROMETHORPHAN
     Dosage: UNK
     Route: 048
     Dates: start: 20190618, end: 20190626
  54. SERETIDE [Concomitant]
     Active Substance: FLUTICASONE PROPIONATE\SALMETEROL XINAFOATE
     Indication: Respiratory disorder
     Dosage: UNK
     Route: 050
     Dates: start: 20100918
  55. Kaolin + pectin [Concomitant]
     Indication: Gastrointestinal disorder
     Dosage: UNK
     Route: 048
     Dates: start: 20101014, end: 20101229
  56. GRISEOFULVIN [Concomitant]
     Active Substance: GRISEOFULVIN
     Indication: Anti-infective therapy
     Dosage: UNK
     Route: 048
     Dates: start: 20110523, end: 20110523
  57. AMBROXOL HYDROCHLORIDE [Concomitant]
     Active Substance: AMBROXOL HYDROCHLORIDE
     Indication: Respiratory disorder
     Dosage: UNK
     Route: 048
     Dates: start: 20111014, end: 20111229
  58. AMBROXOL HYDROCHLORIDE [Concomitant]
     Active Substance: AMBROXOL HYDROCHLORIDE
     Indication: Mucosal disorder
     Dosage: UNK
     Route: 048
     Dates: start: 20170420, end: 20170505
  59. AMBROXOL HYDROCHLORIDE [Concomitant]
     Active Substance: AMBROXOL HYDROCHLORIDE
     Indication: Bronchitis
     Dosage: UNK
     Route: 048
     Dates: start: 20180222, end: 20180225
  60. AMBROXOL HYDROCHLORIDE [Concomitant]
     Active Substance: AMBROXOL HYDROCHLORIDE
     Dosage: UNK
     Route: 048
     Dates: start: 20190103, end: 20190110
  61. AMBROXOL HYDROCHLORIDE [Concomitant]
     Active Substance: AMBROXOL HYDROCHLORIDE
     Dosage: UNK
     Route: 048
     Dates: start: 20190131, end: 20190205
  62. AMBROXOL HYDROCHLORIDE [Concomitant]
     Active Substance: AMBROXOL HYDROCHLORIDE
     Dosage: UNK
     Route: 048
     Dates: start: 20190328, end: 20190402
  63. AMBROXOL HYDROCHLORIDE [Concomitant]
     Active Substance: AMBROXOL HYDROCHLORIDE
     Dosage: UNK
     Route: 048
     Dates: start: 20200528, end: 20200603
  64. AMBROXOL HYDROCHLORIDE [Concomitant]
     Active Substance: AMBROXOL HYDROCHLORIDE
     Dosage: UNK
     Route: 048
     Dates: start: 20200604, end: 20200610
  65. AMBROXOL HYDROCHLORIDE [Concomitant]
     Active Substance: AMBROXOL HYDROCHLORIDE
     Dosage: UNK
     Route: 048
     Dates: start: 20200618, end: 20200625
  66. AMBROXOL HYDROCHLORIDE [Concomitant]
     Active Substance: AMBROXOL HYDROCHLORIDE
     Dosage: UNK
     Route: 048
     Dates: start: 20220127, end: 20220201
  67. IBUPROFEN [Concomitant]
     Active Substance: IBUPROFEN
     Indication: Pain
     Dosage: UNK
     Route: 048
     Dates: start: 20111014, end: 20111229
  68. IBUPROFEN [Concomitant]
     Active Substance: IBUPROFEN
     Indication: Osteoarthritis
     Dosage: UNK
     Route: 048
     Dates: start: 20150312, end: 20150317
  69. IBUPROFEN [Concomitant]
     Active Substance: IBUPROFEN
     Indication: Dysmenorrhoea
     Dosage: UNK
     Route: 048
     Dates: start: 20161006, end: 20161013
  70. IBUPROFEN [Concomitant]
     Active Substance: IBUPROFEN
     Indication: Rheumatoid arthritis
     Dosage: UNK
     Route: 048
     Dates: start: 20170105, end: 20170112
  71. IBUPROFEN [Concomitant]
     Active Substance: IBUPROFEN
     Indication: Pyrexia
     Dosage: UNK
     Route: 048
     Dates: start: 20170112, end: 20170126
  72. IBUPROFEN [Concomitant]
     Active Substance: IBUPROFEN
     Dosage: UNK
     Route: 048
     Dates: start: 20180614, end: 20180621
  73. IBUPROFEN [Concomitant]
     Active Substance: IBUPROFEN
     Dosage: UNK
     Route: 048
     Dates: start: 20190103, end: 20190110
  74. IBUPROFEN [Concomitant]
     Active Substance: IBUPROFEN
     Dosage: UNK
     Route: 048
     Dates: end: 20190205
  75. IBUPROFEN [Concomitant]
     Active Substance: IBUPROFEN
     Dosage: UNK
     Route: 048
     Dates: start: 20190619, end: 20190624
  76. IBUPROFEN [Concomitant]
     Active Substance: IBUPROFEN
     Dosage: UNK
     Route: 048
     Dates: start: 20220428, end: 20220503
  77. MOXIFLOXACIN [Concomitant]
     Active Substance: MOXIFLOXACIN
     Indication: Infection
     Dosage: UNK
     Route: 048
     Dates: start: 20140723, end: 20140726
  78. LORATADINE [Concomitant]
     Active Substance: LORATADINE
     Indication: Hypersensitivity
     Dosage: UNK
     Route: 048
     Dates: start: 20140723, end: 20140726
  79. LORATADINE [Concomitant]
     Active Substance: LORATADINE
     Indication: Bronchitis
     Dosage: UNK
     Route: 048
     Dates: start: 20200618, end: 20200625
  80. CEFTRIAXONE [Concomitant]
     Active Substance: CEFTRIAXONE
     Indication: Infection
     Dosage: UNK
     Route: 048
     Dates: start: 20140730, end: 20140801
  81. CEFTRIAXONE [Concomitant]
     Active Substance: CEFTRIAXONE
     Indication: Antibiotic prophylaxis
     Dosage: UNK
     Route: 042
     Dates: start: 20140730, end: 20140730
  82. CEFTRIAXONE [Concomitant]
     Active Substance: CEFTRIAXONE
     Dosage: UNK
     Route: 042
     Dates: start: 20190618, end: 20190625
  83. AZITHROMYCIN [Concomitant]
     Active Substance: AZITHROMYCIN
     Indication: Infection
     Dosage: UNK
     Route: 048
     Dates: start: 20140730, end: 20140801
  84. AZITHROMYCIN [Concomitant]
     Active Substance: AZITHROMYCIN
     Indication: Antibiotic prophylaxis
     Dosage: UNK
     Route: 048
     Dates: start: 20190619, end: 20190620
  85. BENZONATATE [Concomitant]
     Active Substance: BENZONATATE
     Indication: Cough
     Dosage: UNK
     Route: 048
     Dates: start: 20140730, end: 20140801
  86. METHYLPREDNISOLONE [Concomitant]
     Active Substance: METHYLPREDNISOLONE
     Indication: Inflammation
     Dosage: UNK
     Route: 042
     Dates: start: 20140807, end: 20140807
  87. METHYLPREDNISOLONE [Concomitant]
     Active Substance: METHYLPREDNISOLONE
     Indication: Bronchitis
     Dosage: UNK
     Route: 048
     Dates: start: 20200618, end: 20200622
  88. BUTENAFINE HYDROCHLORIDE [Concomitant]
     Active Substance: BUTENAFINE HYDROCHLORIDE
     Indication: Tinea pedis
     Dosage: UNK
     Route: 061
     Dates: start: 20140903, end: 20140903
  89. BUTENAFINE HYDROCHLORIDE [Concomitant]
     Active Substance: BUTENAFINE HYDROCHLORIDE
     Indication: Antifungal treatment
     Dosage: UNK
     Route: 061
     Dates: start: 20160505, end: 20160505
  90. TRIAMCINOLONE [Concomitant]
     Active Substance: TRIAMCINOLONE
     Indication: Inflammation
     Dosage: UNK
     Route: 048
     Dates: start: 20140915, end: 20141012
  91. DESLORATADINE [Concomitant]
     Active Substance: DESLORATADINE
     Indication: Hypersensitivity
     Dosage: UNK
     Route: 048
     Dates: start: 20140915, end: 20141012
  92. PSEUDOEPHEDRINE [Concomitant]
     Active Substance: PSEUDOEPHEDRINE
     Indication: Respiratory disorder
     Dosage: UNK
     Route: 048
     Dates: start: 20140915, end: 20141012
  93. BETAMETHASONE BENZOATE;GENTAMICIN SULFATE [Concomitant]
     Indication: Superficial inflammatory dermatosis
     Dosage: UNK
     Route: 061
     Dates: start: 20150115, end: 20150115
  94. BETAMETHASONE BENZOATE;GENTAMICIN SULFATE [Concomitant]
     Dosage: UNK
     Route: 061
     Dates: start: 20150122, end: 20150122
  95. BETAMETHASONE BENZOATE;GENTAMICIN SULFATE [Concomitant]
     Dosage: UNK
     Route: 061
     Dates: start: 20150129, end: 20150129
  96. BETAMETHASONE BENZOATE;GENTAMICIN SULFATE [Concomitant]
     Dosage: UNK
     Route: 061
     Dates: start: 20150618, end: 20150618
  97. FAMOTIDINE [Concomitant]
     Active Substance: FAMOTIDINE
     Indication: Ulcer
     Dosage: UNK
     Route: 048
     Dates: start: 20160303, end: 20160310
  98. FAMOTIDINE [Concomitant]
     Active Substance: FAMOTIDINE
     Dosage: UNK
     Route: 048
     Dates: start: 20170706, end: 20170713
  99. FAMOTIDINE [Concomitant]
     Active Substance: FAMOTIDINE
     Dosage: UNK
     Route: 048
     Dates: start: 20171026, end: 20171029
  100. FAMOTIDINE [Concomitant]
     Active Substance: FAMOTIDINE
     Dosage: UNK
     Route: 048
     Dates: start: 20171207, end: 20171210
  101. FAMOTIDINE [Concomitant]
     Active Substance: FAMOTIDINE
     Dosage: UNK
     Route: 048
     Dates: start: 20171214, end: 20171217
  102. FAMOTIDINE [Concomitant]
     Active Substance: FAMOTIDINE
     Dosage: UNK
     Route: 048
     Dates: start: 20180503, end: 20180506
  103. FAMOTIDINE [Concomitant]
     Active Substance: FAMOTIDINE
     Dosage: UNK
     Route: 048
     Dates: start: 20190617, end: 20190619
  104. LEVOCETIRIZINE HYDROCHLORIDE [Concomitant]
     Active Substance: LEVOCETIRIZINE HYDROCHLORIDE
     Indication: Seasonal allergy
     Dosage: UNK
     Route: 048
     Dates: start: 20160505, end: 20160512
  105. LEVOCETIRIZINE HYDROCHLORIDE [Concomitant]
     Active Substance: LEVOCETIRIZINE HYDROCHLORIDE
     Indication: Rhinitis perennial
  106. LEVOCETIRIZINE HYDROCHLORIDE [Concomitant]
     Active Substance: LEVOCETIRIZINE HYDROCHLORIDE
     Indication: Urticaria chronic
  107. METHOCARBAMOL [Concomitant]
     Active Substance: METHOCARBAMOL
     Indication: Muscle spasms
     Dosage: UNK
     Route: 048
     Dates: start: 20170105, end: 20170112
  108. METHOCARBAMOL [Concomitant]
     Active Substance: METHOCARBAMOL
     Dosage: UNK
     Route: 048
     Dates: start: 20170112, end: 20170126
  109. NEOMYCIN SULFATE;TYROTHRICIN [Concomitant]
     Indication: Skin infection
     Dosage: UNK
     Route: 061
     Dates: start: 20170406, end: 20170406
  110. NEOMYCIN SULFATE;TYROTHRICIN [Concomitant]
     Dosage: UNK
     Route: 061
     Dates: start: 20170420, end: 20170427
  111. BISACODYL [Concomitant]
     Active Substance: BISACODYL
     Indication: Constipation prophylaxis
     Dosage: UNK
     Route: 054
     Dates: start: 20170703, end: 20170706
  112. BISACODYL [Concomitant]
     Active Substance: BISACODYL
     Dosage: UNK
     Route: 054
     Dates: start: 20170706, end: 20170713
  113. MONTMORILLONITE [Concomitant]
     Active Substance: MONTMORILLONITE
     Indication: Diarrhoea
     Dosage: UNK
     Route: 048
     Dates: start: 20170703, end: 20170706
  114. MONTMORILLONITE [Concomitant]
     Active Substance: MONTMORILLONITE
     Indication: Antidiarrhoeal supportive care
     Dosage: UNK
     Route: 048
     Dates: start: 20170706, end: 20170713
  115. MONTMORILLONITE [Concomitant]
     Active Substance: MONTMORILLONITE
     Dosage: UNK
     Route: 048
     Dates: start: 20200127, end: 20200130
  116. CYPROHEPTADINE HYDROCHLORIDE [Concomitant]
     Active Substance: CYPROHEPTADINE HYDROCHLORIDE
     Indication: Pruritus
     Dosage: UNK
     Route: 048
     Dates: start: 20180222, end: 20180225
  117. CYPROHEPTADINE HYDROCHLORIDE [Concomitant]
     Active Substance: CYPROHEPTADINE HYDROCHLORIDE
     Indication: Eczema
     Dosage: UNK
     Route: 048
     Dates: start: 20190131, end: 20190205
  118. CYPROHEPTADINE HYDROCHLORIDE [Concomitant]
     Active Substance: CYPROHEPTADINE HYDROCHLORIDE
     Indication: Urticaria
     Dosage: UNK
     Route: 048
     Dates: start: 20190328, end: 20190402
  119. CYPROHEPTADINE HYDROCHLORIDE [Concomitant]
     Active Substance: CYPROHEPTADINE HYDROCHLORIDE
     Indication: Increased appetite
     Dosage: UNK
     Route: 048
     Dates: start: 20191024, end: 20191028
  120. CYPROHEPTADINE HYDROCHLORIDE [Concomitant]
     Active Substance: CYPROHEPTADINE HYDROCHLORIDE
     Indication: Migraine
     Dosage: UNK
     Route: 048
     Dates: start: 20191031, end: 20191104
  121. CYPROHEPTADINE HYDROCHLORIDE [Concomitant]
     Active Substance: CYPROHEPTADINE HYDROCHLORIDE
     Indication: Headache
     Dosage: UNK
     Route: 048
     Dates: start: 20191114, end: 20191118
  122. CYPROHEPTADINE HYDROCHLORIDE [Concomitant]
     Active Substance: CYPROHEPTADINE HYDROCHLORIDE
     Indication: Antiallergic therapy
     Dosage: UNK
     Route: 048
     Dates: start: 20220127, end: 20220201
  123. CYPROHEPTADINE HYDROCHLORIDE [Concomitant]
     Active Substance: CYPROHEPTADINE HYDROCHLORIDE
     Indication: Bronchitis
  124. FENOTEROL [Concomitant]
     Active Substance: FENOTEROL
     Indication: Asthma
     Dosage: UNK
     Route: 055
     Dates: start: 20180517, end: 20180517
  125. FENOTEROL [Concomitant]
     Active Substance: FENOTEROL
     Indication: Bronchitis
     Dosage: UNK
     Route: 055
     Dates: start: 20181129, end: 20181206
  126. FENOTEROL [Concomitant]
     Active Substance: FENOTEROL
     Indication: Bronchitis chronic
     Dosage: UNK
     Route: 055
     Dates: start: 20190103, end: 20190110
  127. FENOTEROL [Concomitant]
     Active Substance: FENOTEROL
     Indication: Respiratory disorder
     Dosage: UNK
     Route: 048
     Dates: start: 20190624, end: 20190626
  128. FENOTEROL [Concomitant]
     Active Substance: FENOTEROL
     Dosage: UNK
     Route: 055
     Dates: start: 20200312, end: 20200319
  129. FENOTEROL [Concomitant]
     Active Substance: FENOTEROL
     Dosage: UNK
     Route: 055
     Dates: start: 20200528, end: 20200604
  130. FENOTEROL [Concomitant]
     Active Substance: FENOTEROL
     Dosage: UNK
     Route: 055
     Dates: start: 20200604, end: 20200611
  131. CIMETIDINE [Concomitant]
     Active Substance: CIMETIDINE
     Indication: Gastric ulcer
     Dosage: UNK
     Route: 048
     Dates: start: 20181220, end: 20181225
  132. CIMETIDINE [Concomitant]
     Active Substance: CIMETIDINE
     Indication: Duodenal ulcer
  133. CIMETIDINE [Concomitant]
     Active Substance: CIMETIDINE
     Indication: Gastrooesophageal reflux disease
  134. ALUMINUM HYDROXIDE [Concomitant]
     Active Substance: ALUMINUM HYDROXIDE
     Indication: Acidosis
     Dosage: UNK
     Route: 048
     Dates: start: 20190617, end: 20190619
  135. EPINEPHRINE [Concomitant]
     Active Substance: EPINEPHRINE
     Indication: Nervous system disorder
     Dosage: UNK
     Route: 055
     Dates: start: 20190618, end: 20190623
  136. CLINDAMYCIN PHOSPHATE [Concomitant]
     Active Substance: CLINDAMYCIN PHOSPHATE
     Indication: Antibiotic prophylaxis
     Dosage: UNK
     Route: 042
     Dates: start: 20190618, end: 20190625
  137. CEFIXIME [Concomitant]
     Active Substance: CEFIXIME
     Indication: Antibiotic prophylaxis
     Dosage: UNK
     Route: 048
     Dates: start: 20190619, end: 20190620
  138. TERBUTALINE [Concomitant]
     Active Substance: TERBUTALINE
     Indication: Asthma
     Dosage: UNK
     Route: 055
     Dates: start: 20200528, end: 20200528
  139. TERBUTALINE [Concomitant]
     Active Substance: TERBUTALINE
     Dosage: UNK
     Route: 055
     Dates: start: 20200604, end: 20200611
  140. TERBUTALINE [Concomitant]
     Active Substance: TERBUTALINE
     Dosage: UNK
     Route: 048
     Dates: start: 20200702, end: 20200813
  141. TERBUTALINE [Concomitant]
     Active Substance: TERBUTALINE
     Dosage: UNK
     Route: 048
     Dates: start: 20200820, end: 20200827
  142. TERBUTALINE [Concomitant]
     Active Substance: TERBUTALINE
     Dosage: UNK
     Route: 048
     Dates: start: 20200903, end: 20200924
  143. IPRATROPIUM BROMIDE [Concomitant]
     Active Substance: IPRATROPIUM BROMIDE
     Indication: Asthma
     Dosage: UNK
     Route: 055
     Dates: start: 20200528, end: 20200528
  144. IPRATROPIUM BROMIDE [Concomitant]
     Active Substance: IPRATROPIUM BROMIDE
     Dosage: UNK
     Route: 055
     Dates: start: 20200604, end: 20200611
  145. IPRATROPIUM BROMIDE [Concomitant]
     Active Substance: IPRATROPIUM BROMIDE
     Dosage: UNK
     Route: 048
     Dates: start: 20200702, end: 20200813
  146. IPRATROPIUM BROMIDE [Concomitant]
     Active Substance: IPRATROPIUM BROMIDE
     Dosage: UNK
     Route: 048
     Dates: start: 20200820, end: 20200827
  147. IPRATROPIUM BROMIDE [Concomitant]
     Active Substance: IPRATROPIUM BROMIDE
     Dosage: UNK
     Route: 048
     Dates: start: 20200903, end: 20200924
  148. FLUTICASONE FUROATE [Concomitant]
     Active Substance: FLUTICASONE FUROATE
     Indication: Bronchitis
     Dosage: UNK
     Route: 045
     Dates: start: 20200618, end: 20200716
  149. FUROSEMIDE [Concomitant]
     Active Substance: FUROSEMIDE
     Indication: Oedema
     Dosage: UNK
     Route: 042
     Dates: start: 20200723, end: 20200723
  150. FUROSEMIDE [Concomitant]
     Active Substance: FUROSEMIDE
     Indication: Cardiac disorder
     Dosage: UNK
     Route: 048
     Dates: start: 20200730, end: 20200806
  151. FUROSEMIDE [Concomitant]
     Active Substance: FUROSEMIDE
     Dosage: UNK
     Route: 048
     Dates: start: 20200903, end: 20200924
  152. FUROSEMIDE [Concomitant]
     Active Substance: FUROSEMIDE
     Dosage: UNK
     Route: 048
     Dates: start: 20201008
  153. FUROSEMIDE [Concomitant]
     Active Substance: FUROSEMIDE
     Dosage: UNK
     Route: 048
     Dates: start: 20211230, end: 20220224
  154. FUROSEMIDE [Concomitant]
     Active Substance: FUROSEMIDE
     Dosage: UNK
     Route: 030
     Dates: start: 20220303, end: 20220303
  155. FUROSEMIDE [Concomitant]
     Active Substance: FUROSEMIDE
     Dosage: UNK
     Route: 048
     Dates: start: 20220303, end: 20220331
  156. FUROSEMIDE [Concomitant]
     Active Substance: FUROSEMIDE
     Dosage: UNK
     Route: 048
     Dates: start: 20220428, end: 20220526
  157. FUROSEMIDE [Concomitant]
     Active Substance: FUROSEMIDE
     Dosage: UNK
     Route: 048
     Dates: start: 20220616
  158. MOMETASONE FUROATE [Concomitant]
     Active Substance: MOMETASONE FUROATE
     Indication: Rhinitis allergic
     Dosage: UNK
     Route: 045
     Dates: start: 20201013, end: 20201027
  159. ISOSORBIDE MONONITRATE [Concomitant]
     Active Substance: ISOSORBIDE MONONITRATE
     Indication: Mitral valve stenosis
     Dosage: UNK
     Route: 048
     Dates: start: 20210419
  160. ISOSORBIDE MONONITRATE [Concomitant]
     Active Substance: ISOSORBIDE MONONITRATE
     Indication: Aortic valve stenosis
  161. KETOROLAC TROMETHAMINE [Concomitant]
     Active Substance: KETOROLAC TROMETHAMINE
     Indication: Abdominal pain
     Dosage: UNK
     Route: 030
     Dates: start: 20211007, end: 20211007
  162. MEFENAMIC ACID [Concomitant]
     Active Substance: MEFENAMIC ACID
     Indication: Abdominal pain
     Dosage: UNK
     Route: 048
     Dates: start: 20211007, end: 20211012
  163. MAGNESIUM OXIDE [Concomitant]
     Active Substance: MAGNESIUM OXIDE
     Indication: Abdominal pain
     Dosage: UNK
     Route: 048
     Dates: start: 20211007, end: 20211012
  164. ALVERINE CITRATE [Concomitant]
     Active Substance: ALVERINE CITRATE
     Indication: Abdominal pain
     Dosage: UNK
     Route: 048
     Dates: start: 20211007, end: 20211012
  165. CEFUROXIME [Concomitant]
     Active Substance: CEFUROXIME
     Indication: Abdominal pain
     Dosage: UNK
     Route: 048
     Dates: start: 20211007, end: 20211012
  166. INFLUENZA A(H5N1) VACCINE [Concomitant]
     Indication: Influenza
     Dosage: UNK
     Route: 030
     Dates: start: 20211118, end: 20211118

REACTIONS (3)
  - Pneumonia [Recovered/Resolved]
  - Dyspnoea [Unknown]
  - Product dose omission issue [Unknown]

NARRATIVE: CASE EVENT DATE: 20190619
